FAERS Safety Report 10583411 (Version 1)
Quarter: 2014Q4

REPORT INFORMATION
  Report Type: Spontaneous
  Country: US (occurrence: US)
  Receive Date: 20141114
  Receipt Date: 20141114
  Transmission Date: 20150529
  Serious: Yes (Other)
  Sender: FDA-Public Use
  Company Number: US-CIPLA LTD.-2014US01800

PATIENT

DRUGS (11)
  1. GEMCITABINE [Suspect]
     Active Substance: GEMCITABINE\GEMCITABINE HYDROCHLORIDE
     Indication: PANCREATIC CARCINOMA STAGE IV
     Dosage: 1000 MG/M2, PER WEEK
  2. RADIATION [Suspect]
     Active Substance: RADIATION THERAPY
     Dosage: 30 GY IN 15 DAILY FRACTIONS
  3. DEXAMETHASONE. [Concomitant]
     Active Substance: DEXAMETHASONE
     Dosage: 8 MG, DAILY, FOR 3 DAYS AFTER EACH TREATMENT
     Route: 048
  4. FOSAPREPITANT [Concomitant]
     Active Substance: FOSAPREPITANT
     Indication: SUPPORTIVE CARE
     Dosage: 150 MG, 30 MIN BEFORE CHEMOTHERAPY
     Route: 042
  5. RADIATION [Suspect]
     Active Substance: RADIATION THERAPY
     Indication: PANCREATIC CARCINOMA STAGE IV
     Dosage: 36 GY IN 15 DAILY FRACTIONS
  6. PEGFILGRASTIM [Concomitant]
     Active Substance: PEGFILGRASTIM
     Indication: SUPPORTIVE CARE
     Dosage: 6 MG, DAY 4 (24 H AFTER CESSATION OF 5-FLUOROURACIL PUMP)
     Route: 058
  7. DEXAMETHASONE. [Concomitant]
     Active Substance: DEXAMETHASONE
     Indication: SUPPORTIVE CARE
     Dosage: 12 MG, UNK
     Route: 048
  8. 5-FLUOROURACIL [Suspect]
     Active Substance: FLUOROURACIL
     Indication: PANCREATIC CARCINOMA STAGE IV
     Dosage: 2400 MG/M2, CONTINUOUS INFUSION DURING 46 HOURS
  9. PALONOSETRON [Concomitant]
     Active Substance: PALONOSETRON
     Indication: SUPPORTIVE CARE
     Dosage: 0.25 MG, IV PUSH DURING 3 MINS
     Route: 042
  10. IRINOTECAN [Suspect]
     Active Substance: IRINOTECAN
     Indication: PANCREATIC CARCINOMA STAGE IV
     Dosage: 165 MG/M2, DURING 90 MINS, EVERY 2 WEEKS FOR 4-8 TREATMENTS
     Route: 042
  11. OXALIPLATIN. [Suspect]
     Active Substance: OXALIPLATIN
     Indication: PANCREATIC CARCINOMA STAGE IV
     Dosage: 85 MG/M2, DURING 2-4 HOURS
     Route: 042

REACTIONS (1)
  - Clostridium difficile colitis [Unknown]
